FAERS Safety Report 5811165-9 (Version None)
Quarter: 2008Q3

REPORT INFORMATION
  Report Type: 
  Country: None (occurrence: None)
  Receive Date: 20080710
  Receipt Date: 20080701
  Transmission Date: 20090109
  Serious: Yes (Other)
  Sender: FDA-Public Use
  Company Number: 2008AP000266

PATIENT
  Age: 45 Year
  Sex: Female

DRUGS (22)
  1. PAROXETINE HCL [Suspect]
     Indication: POSTPARTUM DEPRESSION
     Dosage: 30 MG; PO;QD  20 MG; PO; 20 MG; PO; QD;  40 MG; PO
     Route: 048
     Dates: start: 19991201
  2. PAROXETINE HCL [Suspect]
     Indication: POSTPARTUM DEPRESSION
     Dosage: 30 MG; PO;QD  20 MG; PO; 20 MG; PO; QD;  40 MG; PO
     Route: 048
     Dates: start: 20000225
  3. PAROXETINE HCL [Suspect]
     Indication: POSTPARTUM DEPRESSION
     Dosage: 30 MG; PO;QD  20 MG; PO; 20 MG; PO; QD;  40 MG; PO
     Route: 048
     Dates: start: 20020711
  4. PAROXETINE HCL [Suspect]
     Indication: POSTPARTUM DEPRESSION
     Dosage: 30 MG; PO;QD  20 MG; PO; 20 MG; PO; QD;  40 MG; PO
     Route: 048
     Dates: start: 20030601
  5. PAROXETINE HCL [Suspect]
     Indication: POSTPARTUM DEPRESSION
     Dosage: 30 MG; PO;QD  20 MG; PO; 20 MG; PO; QD;  40 MG; PO
     Route: 048
     Dates: start: 20060525
  6. ATENOLOL [Concomitant]
  7. FLUOXETINE HCL [Concomitant]
  8. METFORMIN HCL [Concomitant]
  9. OMEPRAZOLE [Concomitant]
  10. ORLISTAT (ORLISTAT) [Concomitant]
  11. TAMOXIFEN CITRATE [Concomitant]
  12. TEMAZEPAM [Concomitant]
  13. ZOPICLONE (ZOPICLONE) [Concomitant]
  14. PREDNISOLONE [Concomitant]
  15. CLOMIPHENE CITRATE [Concomitant]
  16. DICLOFENAC SODIUM [Concomitant]
  17. IBUPROFEN [Concomitant]
  18. FRUMIL (FRUMIL) [Concomitant]
  19. FUROSEMIDE [Concomitant]
  20. BISOPROLOL FUMARATE [Concomitant]
  21. PERINDOPRIL ERBUMINE [Concomitant]
  22. ENDOCRINE THERAPY (ENDOCRINE THERAPY) [Concomitant]

REACTIONS (37)
  - AGITATION [None]
  - BREAST PAIN [None]
  - CONFUSIONAL STATE [None]
  - DISTURBANCE IN ATTENTION [None]
  - DIZZINESS [None]
  - DRUG EFFECT DECREASED [None]
  - DRUG WITHDRAWAL SYNDROME [None]
  - EMOTIONAL DISTRESS [None]
  - FATIGUE [None]
  - GLUCOSE TOLERANCE IMPAIRED [None]
  - HYPERHIDROSIS [None]
  - HYPOGLYCAEMIA [None]
  - INCORRECT DOSE ADMINISTERED [None]
  - INFLUENZA LIKE ILLNESS [None]
  - INTERVERTEBRAL DISC DEGENERATION [None]
  - LOCAL SWELLING [None]
  - MALAISE [None]
  - MEMORY IMPAIRMENT [None]
  - MOBILITY DECREASED [None]
  - MOOD SWINGS [None]
  - MUSCLE FATIGUE [None]
  - MUSCULAR WEAKNESS [None]
  - NECK MASS [None]
  - NEURALGIA [None]
  - NEUROPATHY PERIPHERAL [None]
  - NIGHTMARE [None]
  - OSTEOARTHRITIS [None]
  - PALPITATIONS [None]
  - SLUGGISHNESS [None]
  - STRESS [None]
  - SUICIDAL IDEATION [None]
  - SUICIDE ATTEMPT [None]
  - SUPRAVENTRICULAR TACHYCARDIA [None]
  - SYNCOPE [None]
  - TREMOR [None]
  - VERTIGO [None]
  - WEIGHT LOSS POOR [None]
